FAERS Safety Report 7245206-1 (Version None)
Quarter: 2011Q1

REPORT INFORMATION
  Report Type: 
  Country: None (occurrence: None)
  Receive Date: 20110126
  Receipt Date: 20110120
  Transmission Date: 20110831
  Serious: Yes (Other)
  Sender: FDA-Public Use
  Company Number: PHHY2011FR05012

PATIENT
  Sex: Male

DRUGS (1)
  1. RASILEZ [Suspect]
     Indication: HYPERTENSION
     Dosage: 300 MG, UNK
     Route: 048

REACTIONS (3)
  - CREATININE RENAL CLEARANCE DECREASED [None]
  - RENAL FAILURE [None]
  - BLOOD CREATININE INCREASED [None]
